FAERS Safety Report 6502029-6 (Version None)
Quarter: 2009Q4

REPORT INFORMATION
  Report Type: 
  Country: None (occurrence: None)
  Receive Date: 20091214
  Receipt Date: 20091125
  Transmission Date: 20100525
  Serious: Yes (Other)
  Sender: FDA-Public Use
  Company Number: 8045864

PATIENT
  Sex: Female

DRUGS (10)
  1. CERTOLIZUMAB PEGOL (CDP870) [Suspect]
     Indication: RHEUMATOID ARTHRITIS
     Dosage: (2 DF 1X/2 WEEKS SUBCUTANEOUS)
     Route: 058
     Dates: start: 20081215, end: 20090316
  2. PLACEBO (PLACEBO) [Suspect]
     Indication: RHEUMATOID ARTHRITIS
     Dosage: (2 DF QOD SUBCUTANEOUS)
     Route: 058
     Dates: start: 20081215, end: 20090316
  3. METHOTREXATE [Suspect]
     Indication: RHEUMATOID ARTHRITIS
     Dosage: (8 MG 1X/WEEK BUCCAL)
     Route: 002
     Dates: start: 20080328, end: 20090307
  4. PREDNISOLONE [Concomitant]
  5. CIMETIDINE [Concomitant]
  6. AMLODIPINE BESYLATE [Concomitant]
  7. FOLIC ACID [Concomitant]
  8. FLUTICASONE PROPIONATE [Concomitant]
  9. KAKKON-TO [Concomitant]
  10. EPHEDRA [Concomitant]

REACTIONS (4)
  - DRUG INEFFECTIVE [None]
  - ORGANISING PNEUMONIA [None]
  - REFUSAL OF TREATMENT BY PATIENT [None]
  - UPPER RESPIRATORY TRACT INFLAMMATION [None]
